FAERS Safety Report 5655179-0 (Version None)
Quarter: 2008Q1

REPORT INFORMATION
  Report Type: 
  Country: None (occurrence: None)
  Receive Date: 20080307
  Receipt Date: 20080225
  Transmission Date: 20080703
  Serious: Yes (Hospitalization)
  Sender: FDA-Public Use
  Company Number: GB-AMGEN-US267406

PATIENT
  Sex: Female

DRUGS (3)
  1. ENBREL [Suspect]
     Indication: DRUG USE FOR UNKNOWN INDICATION
     Dosage: UNKNOWN
     Route: 058
  2. CORTICOSTEROID NOS [Suspect]
     Indication: DRUG USE FOR UNKNOWN INDICATION
     Dosage: HIGH DOSE
     Route: 065
     Dates: start: 20080121
  3. METHOTREXATE [Suspect]
     Indication: DRUG USE FOR UNKNOWN INDICATION
     Dosage: UNKNOWN
     Route: 065
     Dates: start: 20071201

REACTIONS (3)
  - BETA HAEMOLYTIC STREPTOCOCCAL INFECTION [None]
  - MULTI-ORGAN FAILURE [None]
  - SEPSIS [None]
